FAERS Safety Report 10423767 (Version 1)
Quarter: 2014Q3

REPORT INFORMATION
  Report Type: Spontaneous
  Country: US (occurrence: None)
  Receive Date: 20140722
  Receipt Date: 20140722
  Transmission Date: 20150326
  Serious: No
  Sender: FDA-Public Use
  Company Number: 163-10004-14061372

PATIENT
  Age: 54 Year
  Sex: Female
  Weight: 111.13 kg

DRUGS (10)
  1. OTEZLA [Suspect]
     Active Substance: APREMILAST
     Indication: PSORIATIC ARTHROPATHY
     Route: 048
     Dates: start: 20140522
  2. PREDNISONE (PREDNISONE) [Concomitant]
     Active Substance: PREDNISONE
  3. TRILEPTAL [Concomitant]
     Active Substance: OXCARBAZEPINE
  4. ATARAX [Concomitant]
     Active Substance: HYDROXYZINE\HYDROXYZINE HYDROCHLORIDE
  5. NADOLOL (NADOLOL) [Concomitant]
     Active Substance: NADOLOL
  6. XANAX [Concomitant]
     Active Substance: ALPRAZOLAM
  7. FETZIMA (LEVOMILNACIPRAN) [Concomitant]
  8. REMERON [Concomitant]
     Active Substance: MIRTAZAPINE
  9. TEMAZEPAM (TEMAZEPAM) [Concomitant]
     Active Substance: TEMAZEPAM
  10. EXELON [Concomitant]
     Active Substance: RIVASTIGMINE TARTRATE

REACTIONS (3)
  - Headache [None]
  - Swelling [None]
  - Depression [None]

NARRATIVE: CASE EVENT DATE: 20140526
